FAERS Safety Report 9193021 (Version 1)
Quarter: 2013Q1

REPORT INFORMATION
  Report Type: Spontaneous
  Country: US (occurrence: US)
  Receive Date: 20130327
  Receipt Date: 20130327
  Transmission Date: 20140127
  Serious: Yes (Hospitalization)
  Sender: FDA-Public Use
  Company Number: US-INCYTE CORPORATION-2013IN000588

PATIENT
  Sex: Female

DRUGS (1)
  1. JAKAFI [Suspect]
     Indication: LYMPHATIC DISORDER
     Dosage: 15 MG, BID
     Route: 048
     Dates: start: 20130214

REACTIONS (1)
  - Acute leukaemia [Unknown]
